FAERS Safety Report 7056410-X (Version None)
Quarter: 2010Q4

REPORT INFORMATION
  Report Type: 
  Country: None (occurrence: None)
  Receive Date: 20101018
  Receipt Date: 20101014
  Transmission Date: 20110411
  Serious: Yes (Death, Disabling)
  Sender: FDA-Public Use
  Company Number: 2010SP054766

PATIENT
  Age: 42 Year
  Sex: Female
  Weight: 51 kg

DRUGS (14)
  1. TEMODAL [Suspect]
     Indication: GLIOBLASTOMA MULTIFORME
     Dosage: SEE IMAGE
     Route: 048
     Dates: start: 20061012, end: 20061016
  2. TEMODAL [Suspect]
     Indication: GLIOBLASTOMA MULTIFORME
     Dosage: SEE IMAGE
     Route: 048
     Dates: start: 20061109, end: 20061113
  3. TEMODAL [Suspect]
     Indication: GLIOBLASTOMA MULTIFORME
     Dosage: SEE IMAGE
     Route: 048
     Dates: start: 20061207, end: 20061211
  4. TEMODAL [Suspect]
     Indication: GLIOBLASTOMA MULTIFORME
     Dosage: SEE IMAGE
     Route: 048
     Dates: start: 20070111, end: 20070115
  5. TEMODAL [Suspect]
     Indication: GLIOBLASTOMA MULTIFORME
     Dosage: SEE IMAGE
     Route: 048
     Dates: start: 20070212, end: 20070216
  6. TEMODAL [Suspect]
     Indication: GLIOBLASTOMA MULTIFORME
     Dosage: SEE IMAGE
     Route: 048
     Dates: start: 20070311, end: 20070312
  7. LOXONIN [Concomitant]
  8. MAGLAX [Concomitant]
  9. ALEVIATIN [Concomitant]
  10. ALLEGRA [Concomitant]
  11. ZYRTEC [Concomitant]
  12. DERMOVATE [Concomitant]
  13. PANTOSIN [Concomitant]
  14. MAGNESIUM OXIDE [Concomitant]

REACTIONS (3)
  - DISEASE PROGRESSION [None]
  - ECZEMA [None]
  - RADIATION NECROSIS [None]
